FAERS Safety Report 11746678 (Version 1)
Quarter: 2015Q4

REPORT INFORMATION
  Report Type: Spontaneous
  Country: US (occurrence: None)
  Receive Date: 20151116
  Receipt Date: 20151116
  Transmission Date: 20160304
  Serious: No
  Sender: FDA-Public Use
  Company Number: None

PATIENT
  Age: 41 Year
  Sex: Female
  Weight: 79.38 kg

DRUGS (7)
  1. KLONOPIN [Concomitant]
     Active Substance: CLONAZEPAM
  2. PRAZOSIN [Concomitant]
     Active Substance: PRAZOSIN
  3. TOPIRAMATE 25MG 4840903 [Suspect]
     Active Substance: TOPIRAMATE
     Indication: ADVERSE DRUG REACTION
     Dosage: 4 PILLS, ONCE DAILY, TAKEN BY MOUTH
     Route: 048
     Dates: start: 20150601, end: 20151001
  4. HYDROXYZINE [Concomitant]
     Active Substance: HYDROXYZINE\HYDROXYZINE HYDROCHLORIDE
  5. BENADRYL [Concomitant]
     Active Substance: DIPHENHYDRAMINE HYDROCHLORIDE
  6. MULTI VITAMIN [Concomitant]
     Active Substance: VITAMINS
  7. LAMICTAL [Concomitant]
     Active Substance: LAMOTRIGINE

REACTIONS (3)
  - Lacrimation increased [None]
  - Eye pain [None]
  - Dry eye [None]

NARRATIVE: CASE EVENT DATE: 20151001
